FAERS Safety Report 14280078 (Version 1)
Quarter: 2017Q4

REPORT INFORMATION
  Report Type: Spontaneous
  Country: US (occurrence: None)
  Receive Date: 20171212
  Receipt Date: 20171212
  Transmission Date: 20180321
  Serious: No
  Sender: FDA-Public Use
  Company Number: None

PATIENT
  Sex: Male

DRUGS (1)
  1. RASUVO [Suspect]
     Active Substance: METHOTREXATE SODIUM
     Indication: DEAFNESS NEUROSENSORY
     Route: 058
     Dates: start: 201703

REACTIONS (5)
  - Vomiting [None]
  - Vertigo [None]
  - Gingival bleeding [None]
  - Balance disorder [None]
  - Meniere^s disease [None]
